FAERS Safety Report 7176819-3 (Version None)
Quarter: 2010Q4

REPORT INFORMATION
  Report Type: 
  Country: None (occurrence: None)
  Receive Date: 20101215
  Receipt Date: 20101215
  Transmission Date: 20110411
  Serious: Yes (Other)
  Sender: FDA-Public Use
  Company Number: None

PATIENT
  Sex: Male
  Weight: 94.3482 kg

DRUGS (1)
  1. TIKOSYN [Suspect]
     Indication: CARDIAC ABLATION
     Dosage: 250 2 PO
     Route: 048
     Dates: start: 20090811, end: 20091008

REACTIONS (2)
  - GOUT [None]
  - NO THERAPEUTIC RESPONSE [None]
